FAERS Safety Report 15036502 (Version 3)
Quarter: 2019Q2

REPORT INFORMATION
  Report Type: Report from Study
  Country: JP (occurrence: JP)
  Receive Date: 20180620
  Receipt Date: 20190530
  Transmission Date: 20190711
  Serious: Yes (Death)
  Sender: FDA-Public Use
  Company Number: JP-DSJP-DSJ-2018-124421

PATIENT

DRUGS (8)
  1. EDOXABAN [Suspect]
     Active Substance: EDOXABAN TOSYLATE
     Indication: ATRIAL FIBRILLATION
     Dosage: 30 MG, QD
     Route: 048
     Dates: start: 20160510, end: 20171122
  2. XARELTO [Concomitant]
     Active Substance: RIVAROXABAN
     Dosage: 15MG/DAY
     Route: 048
     Dates: end: 20160509
  3. COVERSYL                           /00790702/ [Concomitant]
     Active Substance: PERINDOPRIL
     Dosage: 4MG/DAY
     Route: 048
     Dates: end: 20160621
  4. DEPAS                              /00749301/ [Concomitant]
     Active Substance: ETIZOLAM
     Dosage: 1MG/DAY
     Route: 048
     Dates: end: 20171122
  5. MYSLEE [Concomitant]
     Active Substance: ZOLPIDEM TARTRATE
     Dosage: 10MG/DAY
     Route: 048
     Dates: end: 20171122
  6. ISOMENYL [Concomitant]
     Active Substance: ISOPROTERENOL HYDROCHLORIDE
     Dosage: 22.5MG/DAY
     Route: 048
     Dates: start: 20170310, end: 20171122
  7. NESINA [Concomitant]
     Active Substance: ALOGLIPTIN BENZOATE
     Dosage: 25MG/DAY
     Route: 048
     Dates: end: 20171122
  8. CERCINE [Concomitant]
     Active Substance: DIAZEPAM
     Dosage: 1.2G/DAY
     Route: 048
     Dates: start: 20170310, end: 20171122

REACTIONS (1)
  - Death [Fatal]

NARRATIVE: CASE EVENT DATE: 20171122
